FAERS Safety Report 9283389 (Version 1)
Quarter: 2013Q2

REPORT INFORMATION
  Report Type: Spontaneous
  Country: US (occurrence: US)
  Receive Date: 20130510
  Receipt Date: 20130510
  Transmission Date: 20140414
  Serious: No
  Sender: FDA-Public Use
  Company Number: US-GLAXOSMITHKLINE-A1003390A

PATIENT
  Age: 50 Year
  Sex: Female
  Weight: 73.6 kg

DRUGS (10)
  1. TYKERB [Suspect]
     Indication: PRODUCT USED FOR UNKNOWN INDICATION
     Dosage: 1000MG PER DAY
     Route: 048
     Dates: start: 20121001
  2. LUMIGAN [Concomitant]
  3. MERIDIA [Concomitant]
  4. BRIMONIDINE [Concomitant]
  5. DORZOLAMIDE [Concomitant]
  6. CALCIUM + D [Concomitant]
  7. VITAMIN D [Concomitant]
  8. TIMOLOL MALEATE OPHTHALMIC [Concomitant]
  9. HERCEPTIN [Concomitant]
  10. IMODIUM A-D [Concomitant]

REACTIONS (4)
  - Diarrhoea [Recovered/Resolved]
  - Nausea [Unknown]
  - Vomiting [Unknown]
  - Rash [Recovered/Resolved]
